FAERS Safety Report 7084106-7 (Version None)
Quarter: 2010Q4

REPORT INFORMATION
  Report Type: 
  Country: None (occurrence: None)
  Receive Date: 20101026
  Receipt Date: 20101014
  Transmission Date: 20110411
  Serious: Yes (Hospitalization)
  Sender: FDA-Public Use
  Company Number: ZYD-10-AE-116

PATIENT
  Age: 56 Year
  Sex: Male

DRUGS (9)
  1. RIBAVIRIN [Suspect]
     Indication: HEPATITIS C
     Dosage: 1000MG, QD, ORAL
     Route: 048
     Dates: start: 20100413, end: 20100424
  2. PEGASYS [Suspect]
     Indication: HEPATITIS C
     Dosage: 180 UG, WEEKLY, SC
     Route: 058
     Dates: start: 20100413, end: 20100420
  3. IDX184 [Suspect]
     Indication: HEPATITIS C
     Dosage: 150MG - QD - ORAL
     Route: 048
     Dates: start: 20100413, end: 20100424
  4. WELCHOL [Concomitant]
  5. OXYCODONE HCL [Concomitant]
  6. RESTORIL [Concomitant]
  7. LISINOPRIL [Concomitant]
  8. ALLEGRA [Concomitant]
  9. PROMETHAZINE [Concomitant]

REACTIONS (2)
  - CHOLECYSTITIS ACUTE [None]
  - CONFUSIONAL STATE [None]
